FAERS Safety Report 20906824 (Version 1)
Quarter: 2022Q2

REPORT INFORMATION
  Report Type: Spontaneous
  Country: US (occurrence: None)
  Receive Date: 20220602
  Receipt Date: 20220602
  Transmission Date: 20220721
  Serious: Yes (Death)
  Sender: FDA-Public Use
  Company Number: None

PATIENT
  Age: 73 Year
  Sex: Female
  Weight: 110 kg

DRUGS (1)
  1. PROTAMINE [Suspect]
     Active Substance: PROTAMINE
     Indication: Coagulopathy
     Route: 041
     Dates: start: 20220519, end: 20220519

REACTIONS (6)
  - Pulmonary oedema [None]
  - Right ventricular failure [None]
  - Shock [None]
  - Adverse drug reaction [None]
  - General physical health deterioration [None]
  - Critical illness [None]

NARRATIVE: CASE EVENT DATE: 20220519
